FAERS Safety Report 14026287 (Version 2)
Quarter: 2017Q4

REPORT INFORMATION
  Report Type: Spontaneous
  Country: AU (occurrence: AU)
  Receive Date: 20170929
  Receipt Date: 20171006
  Transmission Date: 20180321
  Serious: Yes (Other)
  Sender: FDA-Public Use
  Company Number: AU-TORRENT-00000229

PATIENT
  Age: 69 Year
  Sex: Male

DRUGS (11)
  1. OLANZAPINE. [Suspect]
     Active Substance: OLANZAPINE
  2. ESOMEPRAZOLE [Concomitant]
     Active Substance: ESOMEPRAZOLE
  3. METOCLOPRAMIDE HYDROCHLORIDE. [Concomitant]
     Active Substance: METOCLOPRAMIDE HYDROCHLORIDE
  4. ENZALUTAMIDE [Concomitant]
     Active Substance: ENZALUTAMIDE
  5. HALOPERIDOL DECANOATE. [Concomitant]
     Active Substance: HALOPERIDOL DECANOATE
  6. CYCLIZINE HYDROCHLORIDE [Concomitant]
     Active Substance: CYCLIZINE HYDROCHLORIDE
  7. ASPIRIN. [Concomitant]
     Active Substance: ASPIRIN
  8. OXYCODONE [Concomitant]
     Active Substance: OXYCODONE
  9. COLECALCIFEROL [Concomitant]
     Active Substance: CHOLECALCIFEROL
  10. PARACETAMOL [Concomitant]
     Active Substance: ACETAMINOPHEN
  11. DENOSUMAB [Concomitant]
     Active Substance: DENOSUMAB

REACTIONS (4)
  - Cognitive disorder [Recovered/Resolved]
  - Agitation [Recovered/Resolved]
  - Delirium [Recovered/Resolved]
  - Drug ineffective for unapproved indication [Unknown]
